FAERS Safety Report 7925316-3 (Version None)
Quarter: 2011Q4

REPORT INFORMATION
  Report Type: 
  Country: None (occurrence: None)
  Receive Date: 20111118
  Receipt Date: 20110405
  Transmission Date: 20120403
  Serious: No
  Sender: FDA-Public Use
  Company Number: US-AMGEN-USASP2011017973

PATIENT
  Age: 83 Year
  Sex: Male

DRUGS (2)
  1. ENBREL [Suspect]
     Indication: PSORIASIS
     Dosage: 50 MG, 2 TIMES/WK
     Dates: start: 20110317
  2. ENBREL [Suspect]
     Dates: start: 20110318

REACTIONS (6)
  - PYREXIA [None]
  - COUGH [None]
  - CHILLS [None]
  - THERAPEUTIC RESPONSE DECREASED [None]
  - RHINORRHOEA [None]
  - NASAL CONGESTION [None]
